FAERS Safety Report 4590986-7 (Version None)
Quarter: 2005Q1

REPORT INFORMATION
  Report Type: 
  Country: None (occurrence: None)
  Receive Date: 20050222
  Receipt Date: 20050222
  Transmission Date: 20050727
  Serious: Yes (Hospitalization, Other)
  Sender: FDA-Public Use
  Company Number: None

PATIENT
  Sex: Female
  Weight: 99 kg

DRUGS (1)
  1. INTERFERON ALPHA-2B [Suspect]
     Dosage: 9.0 MU SC 3X /WEEK. CYCLE = 4 WEEKS
     Route: 058
     Dates: start: 20050126

REACTIONS (6)
  - ARTHRALGIA [None]
  - ARTHRITIS BACTERIAL [None]
  - FRACTURE [None]
  - INFECTION [None]
  - SEPSIS SYNDROME [None]
  - STAPHYLOCOCCAL INFECTION [None]
